FAERS Safety Report 11852950 (Version 2)
Quarter: 2015Q4

REPORT INFORMATION
  Report Type: Spontaneous
  Country: DE (occurrence: DE)
  Receive Date: 20151218
  Receipt Date: 20151221
  Transmission Date: 20160305
  Serious: Yes (Congenital Anomaly, Other)
  Sender: FDA-Public Use
  Company Number: DE-PFIZER INC-2015451428

PATIENT
  Sex: Female

DRUGS (5)
  1. AMITRIPTYLIN [Concomitant]
     Active Substance: AMITRIPTYLINE
     Indication: DEPRESSION
     Dosage: 50 MG, 1X/DAY 1 TRIMESTER 0. - 7.6. GESTATIONAL WEEK
     Route: 064
  2. SEROQUEL XR [Suspect]
     Active Substance: QUETIAPINE FUMARATE
     Indication: PSYCHOTIC DISORDER
     Dosage: 150 MG, 1X/DAY 1 TRIMESTER 0. - 36.1. GESTATIONAL WEEK
     Route: 064
     Dates: start: 20141021, end: 20150701
  3. FOLIO [Concomitant]
     Active Substance: FOLIC ACID
     Indication: VITAMIN SUPPLEMENTATION
     Dosage: 0.4 MG, 1X/DAY 2 TRIMESTER 13. - 33.6. GESTATIONAL WEEK
     Route: 064
  4. VENLAFAXINE HCL [Suspect]
     Active Substance: VENLAFAXINE HYDROCHLORIDE
     Indication: DEPRESSION
     Dosage: 300 MG, DAILY 1 TRIMESTER 0. - 36.1. GESTATIONAL WEEK
     Route: 064
     Dates: start: 20141021, end: 20150701
  5. URSODEOXYCHOLIC ACID [Concomitant]
     Active Substance: URSODIOL
     Indication: CHOLESTASIS OF PREGNANCY
     Dosage: 150 MG, DAILY 3 TRIMESTER 34.5. - 36.1. GESTATIONAL WEEK
     Route: 064
     Dates: start: 20150621, end: 20150701

REACTIONS (10)
  - Agitation neonatal [Recovered/Resolved]
  - Feeding disorder of infancy or early childhood [Recovered/Resolved]
  - Seizure [Recovered/Resolved]
  - Maternal exposure during pregnancy [Unknown]
  - Atrial septal defect [Unknown]
  - Premature baby [Unknown]
  - Withdrawal syndrome [Unknown]
  - Syndactyly [Not Recovered/Not Resolved]
  - Temperature regulation disorder [Recovered/Resolved]
  - Hypotonia neonatal [Recovered/Resolved]

NARRATIVE: CASE EVENT DATE: 2015
